FAERS Safety Report 8221416-1 (Version None)
Quarter: 2012Q1

REPORT INFORMATION
  Report Type: 
  Country: None (occurrence: None)
  Receive Date: 20120320
  Receipt Date: 20120315
  Transmission Date: 20120608
  Serious: Yes (Hospitalization)
  Sender: FDA-Public Use
  Company Number: US-PFIZER INC-2012047673

PATIENT
  Sex: Female
  Weight: 62.585 kg

DRUGS (1)
  1. ARTHROTEC [Suspect]
     Indication: ARTHRITIS
     Dosage: 75/200 MG, 2X/DAY
     Route: 048

REACTIONS (1)
  - MENTAL DISORDER [None]
